FAERS Safety Report 11173864 (Version 1)
Quarter: 2015Q2

REPORT INFORMATION
  Report Type: Spontaneous
  Country: US (occurrence: None)
  Receive Date: 20150608
  Receipt Date: 20150608
  Transmission Date: 20150821
  Serious: Yes (Other)
  Sender: FDA-Public Use
  Company Number: None

PATIENT
  Age: 54 Year
  Sex: Female

DRUGS (1)
  1. ENBREL [Suspect]
     Active Substance: ETANERCEPT
     Dosage: 50MG WEEKLY SQ
     Route: 058
     Dates: start: 20150417

REACTIONS (2)
  - Pain [None]
  - Drug dose omission [None]

NARRATIVE: CASE EVENT DATE: 20150530
